FAERS Safety Report 14615239 (Version 9)
Quarter: 2019Q4

REPORT INFORMATION
  Report Type: Spontaneous
  Country: US (occurrence: US)
  Receive Date: 20180308
  Receipt Date: 20191025
  Transmission Date: 20200122
  Serious: Yes (Hospitalization)
  Sender: FDA-Public Use
  Company Number: US-ACTELION-A-NJ2018-168805

PATIENT
  Sex: Female
  Weight: 58.96 kg

DRUGS (3)
  1. ADEMPAS [Concomitant]
     Active Substance: RIOCIGUAT
  2. VELETRI [Suspect]
     Active Substance: EPOPROSTENOL
     Indication: PULMONARY ARTERIAL HYPERTENSION
     Dosage: 54 NG/KG, PER MIN
     Route: 042
  3. VELETRI [Suspect]
     Active Substance: EPOPROSTENOL
     Dosage: 61 NG/KG, PER MIN
     Route: 042

REACTIONS (6)
  - Fluid overload [Recovered/Resolved]
  - Malaise [Unknown]
  - Therapy change [Unknown]
  - Infection [Unknown]
  - Hospice care [Unknown]
  - Dizziness [Unknown]
